FAERS Safety Report 12799387 (Version 1)
Quarter: 2016Q3

REPORT INFORMATION
  Report Type: Spontaneous
  Country: US (occurrence: US)
  Receive Date: 20160930
  Receipt Date: 20160930
  Transmission Date: 20161109
  Serious: Yes (Other)
  Sender: FDA-Public Use
  Company Number: US-TEVA-697695USA

PATIENT
  Sex: Male

DRUGS (2)
  1. GUAIFENESIN EXTENDED RELEASE [Suspect]
     Active Substance: GUAIFENESIN
     Dosage: 1/2 TABLET
     Dates: start: 20160919, end: 20160919
  2. GUAIFENESIN EXTENDED RELEASE [Suspect]
     Active Substance: GUAIFENESIN
     Dates: start: 20160919, end: 20160919

REACTIONS (3)
  - Incorrect dose administered [Recovered/Resolved]
  - Choking [Recovered/Resolved]
  - Wrong technique in product usage process [Recovered/Resolved]
